FAERS Safety Report 8589127-0 (Version None)
Quarter: 2012Q3

REPORT INFORMATION
  Report Type: 
  Country: None (occurrence: None)
  Receive Date: 20120813
  Receipt Date: 20120808
  Transmission Date: 20120928
  Serious: Yes (Death)
  Sender: FDA-Public Use
  Company Number: US-ASTELLAS-2012US006798

PATIENT
  Sex: Female

DRUGS (13)
  1. MIRALAX                            /00754501/ [Concomitant]
     Indication: PRODUCT USED FOR UNKNOWN INDICATION
     Dosage: 3350 DF, UNKNOWN/D
     Route: 065
  2. GAS-X [Concomitant]
     Indication: PRODUCT USED FOR UNKNOWN INDICATION
     Dosage: 125 MG, UNKNOWN/D
     Route: 065
  3. NAPROXEN [Concomitant]
     Indication: PRODUCT USED FOR UNKNOWN INDICATION
     Dosage: 250 MG, UNKNOWN/D
     Route: 065
  4. ONDANSETRON [Concomitant]
     Indication: PRODUCT USED FOR UNKNOWN INDICATION
     Dosage: 4 MG, UNKNOWN/D
     Route: 065
  5. HYDROMORPHONE HYDROCHLORIDE [Concomitant]
     Indication: PRODUCT USED FOR UNKNOWN INDICATION
     Dosage: 2 MG, UNKNOWN/D
     Route: 065
  6. LORATADINE AND PSEUDOEPHEDRINE SULFATE [Concomitant]
     Indication: PRODUCT USED FOR UNKNOWN INDICATION
     Dosage: 10-240MG, UNKNOWN/D
     Route: 065
  7. ERLOTINIB HYDROCHLORIDE [Suspect]
     Indication: ILL-DEFINED DISORDER
     Dosage: 150 MG, UID/QD
     Route: 048
     Dates: start: 20120716
  8. MEGACE ES [Concomitant]
     Indication: PRODUCT USED FOR UNKNOWN INDICATION
  9. LEVETIRACETAM [Concomitant]
     Indication: PRODUCT USED FOR UNKNOWN INDICATION
     Dosage: 250 MG, UNKNOWN/D
     Route: 065
  10. LORAZEPAM [Concomitant]
     Indication: PRODUCT USED FOR UNKNOWN INDICATION
     Dosage: 1 MG, UNKNOWN/D
     Route: 065
  11. ZOLPIDEM [Concomitant]
     Indication: PRODUCT USED FOR UNKNOWN INDICATION
     Dosage: 5 MG, UNKNOWN/D
     Route: 065
  12. IMODIUM A-D [Concomitant]
     Indication: PRODUCT USED FOR UNKNOWN INDICATION
     Dosage: 2 MG, UNKNOWN/D
     Route: 065
  13. LORATADINE [Concomitant]
     Indication: PRODUCT USED FOR UNKNOWN INDICATION
     Dosage: 10 MG, UNKNOWN/D
     Route: 065

REACTIONS (1)
  - DISEASE PROGRESSION [None]
